FAERS Safety Report 9194729 (Version 1)
Quarter: 2013Q1

REPORT INFORMATION
  Report Type: Spontaneous
  Country: US (occurrence: US)
  Receive Date: 20130327
  Receipt Date: 20130327
  Transmission Date: 20140127
  Serious: No
  Sender: FDA-Public Use
  Company Number: US-ALLERGAN-1208802US

PATIENT
  Age: 50 Year
  Sex: Female

DRUGS (5)
  1. LATISSE 0.03% [Suspect]
     Indication: GROWTH OF EYELASHES
     Dosage: 2 GTT, QHS
     Route: 061
  2. SYNTHROID [Concomitant]
     Indication: THYROID DISORDER
  3. LEXAPRO [Concomitant]
     Indication: STRESS
  4. WELLBUTRIN /00700501/ [Concomitant]
     Indication: STRESS
  5. LAMICTAL [Concomitant]
     Indication: STRESS

REACTIONS (3)
  - Incorrect dose administered [Unknown]
  - Trichorrhexis [Recovering/Resolving]
  - Madarosis [Recovering/Resolving]
